FAERS Safety Report 9132637 (Version 1)
Quarter: 2013Q1

REPORT INFORMATION
  Report Type: Report from Study
  Country: US (occurrence: US)
  Receive Date: 20130301
  Receipt Date: 20130301
  Transmission Date: 20140127
  Serious: Yes (Other)
  Sender: FDA-Public Use
  Company Number: US-ROCHE-1196551

PATIENT
  Sex: Female

DRUGS (10)
  1. TRASTUZUMAB [Suspect]
     Indication: BREAST CANCER
     Dosage: LOADING DOSE
     Route: 042
     Dates: start: 20101202
  2. TRASTUZUMAB [Suspect]
     Dosage: MAINTENANCE DOSE
     Route: 042
     Dates: start: 20101102, end: 20110331
  3. LAPATINIB [Suspect]
     Indication: BREAST CANCER
     Route: 048
     Dates: start: 20110524, end: 20111123
  4. CARBOPLATIN [Suspect]
     Indication: BREAST CANCER
     Dosage: AUC 6
     Route: 042
     Dates: start: 20101202, end: 20110317
  5. DOCETAXEL [Suspect]
     Indication: BREAST CANCER
     Route: 042
     Dates: start: 20101202, end: 20110317
  6. PEGFILGRASTIM [Concomitant]
     Route: 065
     Dates: start: 20101203, end: 20110318
  7. PARACETAMOL [Concomitant]
     Route: 065
     Dates: start: 20101202
  8. SENNOSIDES A + B [Concomitant]
     Route: 065
     Dates: start: 20101208
  9. OMEPRAZOLE [Concomitant]
     Route: 065
     Dates: start: 20110106
  10. OLANZAPINE [Concomitant]
     Route: 065
     Dates: start: 20110225

REACTIONS (2)
  - Alanine aminotransferase increased [Recovered/Resolved]
  - Aspartate aminotransferase increased [Recovered/Resolved]
